FAERS Safety Report 5464792-5 (Version None)
Quarter: 2007Q3

REPORT INFORMATION
  Report Type: 
  Country: None (occurrence: None)
  Receive Date: 20070921
  Receipt Date: 20070911
  Transmission Date: 20080115
  Serious: Yes (Other)
  Sender: FDA-Public Use
  Company Number: BR-PFIZER INC-2007070163

PATIENT
  Sex: Female
  Weight: 57 kg

DRUGS (5)
  1. CHAMPIX [Suspect]
     Indication: TOBACCO USER
     Route: 048
  2. CAPTOPRIL [Concomitant]
     Indication: HYPERTENSION
     Route: 048
  3. DIURETICS [Concomitant]
     Dates: start: 20070701
  4. PROPRANOLOL [Concomitant]
     Route: 048
     Dates: start: 20070801, end: 20070801
  5. HYDROCHLOROTHIAZIDE [Concomitant]
     Dosage: DAILY DOSE:25MG
     Route: 048

REACTIONS (8)
  - ABDOMINAL PAIN UPPER [None]
  - AFFECT LABILITY [None]
  - CONFUSIONAL STATE [None]
  - DRUG WITHDRAWAL SYNDROME [None]
  - NAUSEA [None]
  - SOMNOLENCE [None]
  - TREMOR [None]
  - WEIGHT INCREASED [None]
